FAERS Safety Report 7342674-1 (Version None)
Quarter: 2011Q1

REPORT INFORMATION
  Report Type: 
  Country: None (occurrence: None)
  Receive Date: 20110310
  Receipt Date: 20110307
  Transmission Date: 20110831
  Serious: Yes (Hospitalization, Other)
  Sender: FDA-Public Use
  Company Number: US-PFIZER INC-2010147182

PATIENT
  Sex: Female

DRUGS (1)
  1. SUTENT [Suspect]
     Indication: RENAL CELL CARCINOMA
     Dosage: 50 MG DAILY, FOR 28 DAYS EVERY 42 DAYS
     Route: 048
     Dates: start: 20101008, end: 20110128

REACTIONS (9)
  - PLATELET COUNT DECREASED [None]
  - DIARRHOEA [None]
  - THYROID FUNCTION TEST ABNORMAL [None]
  - BLOOD CHOLESTEROL INCREASED [None]
  - DEHYDRATION [None]
  - ABDOMINAL PAIN [None]
  - FATIGUE [None]
  - DYSPNOEA [None]
  - HEART RATE INCREASED [None]
